FAERS Safety Report 5131258-1 (Version None)
Quarter: 2006Q4

REPORT INFORMATION
  Report Type: 
  Country: None (occurrence: None)
  Receive Date: 20061018
  Receipt Date: 20061018
  Transmission Date: 20070319
  Serious: Yes (Death, Hospitalization)
  Sender: FDA-Public Use
  Company Number: None

PATIENT
  Age: 66 Year
  Sex: Female
  Weight: 72 kg

DRUGS (10)
  1. CETUXIMAB    MERCK + CO [Suspect]
     Indication: INTERSTITIAL LUNG DISEASE
     Dosage: 430MG WEEKLY IV
     Route: 042
     Dates: start: 20060613, end: 20060802
  2. ASPIRIN [Concomitant]
  3. EZETIMIBE [Concomitant]
  4. ATENOLOL [Concomitant]
  5. FLUCONAZOLE [Concomitant]
  6. LOSARTAN POSTASSIUM [Concomitant]
  7. PANTOPRAZOLE SODIUM [Concomitant]
  8. SERTRALINE [Concomitant]
  9. MORPHINE [Concomitant]
  10. GLYBURIDE [Concomitant]

REACTIONS (3)
  - DISEASE PROGRESSION [None]
  - HYPOXIA [None]
  - LUNG INFILTRATION [None]
